FAERS Safety Report 23521290 (Version 1)
Quarter: 2024Q1

REPORT INFORMATION
  Report Type: Report from Study
  Country: US (occurrence: US)
  Receive Date: 20240214
  Receipt Date: 20240214
  Transmission Date: 20240409
  Serious: Yes (Hospitalization)
  Sender: FDA-Public Use
  Company Number: US-JNJFOC-20240222045

PATIENT
  Sex: Male

DRUGS (4)
  1. SPRAVATO [Suspect]
     Active Substance: ESKETAMINE
     Indication: Depression
     Dosage: ^56 MG, 1 TOTAL DOSE^
     Dates: start: 20190712, end: 20190712
  2. SPRAVATO [Suspect]
     Active Substance: ESKETAMINE
     Dosage: ^84 MG, 20 TOTAL DOSES^
     Dates: start: 20190716, end: 20190930
  3. SPRAVATO [Suspect]
     Active Substance: ESKETAMINE
     Dosage: ^56 MG, 1 TOTAL DOSE^
     Dates: start: 20191004, end: 20191004
  4. SPRAVATO [Suspect]
     Active Substance: ESKETAMINE
     Dosage: ^84 MG, 99 TOTAL DOSES^
     Dates: start: 20191009, end: 20231003

REACTIONS (1)
  - Hospitalisation [Unknown]
